FAERS Safety Report 11110628 (Version 1)
Quarter: 2015Q2

REPORT INFORMATION
  Report Type: Report from Study
  Country: CA (occurrence: CA)
  Receive Date: 20150513
  Receipt Date: 20150513
  Transmission Date: 20150821
  Serious: Yes (Hospitalization)
  Sender: FDA-Public Use
  Company Number: CA-JNJFOC-20150417720

PATIENT
  Age: 21 Year
  Sex: Female
  Weight: 103 kg

DRUGS (2)
  1. PREDNISONE. [Concomitant]
     Active Substance: PREDNISONE
     Route: 065
  2. REMICADE [Suspect]
     Active Substance: INFLIXIMAB
     Indication: COLITIS ULCERATIVE
     Route: 042
     Dates: start: 20150413, end: 20150413

REACTIONS (2)
  - Colectomy [Unknown]
  - Haematemesis [Unknown]

NARRATIVE: CASE EVENT DATE: 2015
